FAERS Safety Report 18396016 (Version 3)
Quarter: 2020Q4

REPORT INFORMATION
  Report Type: Spontaneous
  Country: US (occurrence: US)
  Receive Date: 20201018
  Receipt Date: 20201120
  Transmission Date: 20210114
  Serious: Yes (Hospitalization)
  Sender: FDA-Public Use
  Company Number: US-BLUEPRINT MEDICINES CORPORATION-SP-US-2020-001116

PATIENT
  Age: 51 Year
  Sex: Female

DRUGS (1)
  1. AYVAKIT [Suspect]
     Active Substance: AVAPRITINIB
     Indication: VULVAL CANCER
     Route: 048
     Dates: start: 20200925, end: 20201113

REACTIONS (13)
  - Decreased appetite [Unknown]
  - Weight increased [Unknown]
  - Off label use [Not Recovered/Not Resolved]
  - Blood iron abnormal [Unknown]
  - Ageusia [Unknown]
  - Flushing [Unknown]
  - Purpura [Unknown]
  - Product dose omission issue [Unknown]
  - Cough [Unknown]
  - Pleural effusion [Unknown]
  - Nausea [Recovered/Resolved]
  - Fatigue [Not Recovered/Not Resolved]
  - Lack of satiety [Unknown]

NARRATIVE: CASE EVENT DATE: 20201013
